FAERS Safety Report 18076482 (Version 2)
Quarter: 2021Q4

REPORT INFORMATION
  Report Type: Other
  Country: SK (occurrence: SK)
  Receive Date: 20200728
  Receipt Date: 20211208
  Transmission Date: 20220303
  Serious: Yes (Death, Hospitalization)
  Sender: FDA-Public Use
  Company Number: SK-LSSRM-2020-SK-1799711

PATIENT
  Age: 41 Year
  Sex: Male

DRUGS (7)
  1. MYCOPHENOLATE MOFETIL [Suspect]
     Active Substance: MYCOPHENOLATE MOFETIL
     Indication: Chronic graft versus host disease
     Route: 065
  2. CYCLOSPORINE [Suspect]
     Active Substance: CYCLOSPORINE
     Indication: Chronic graft versus host disease
     Route: 065
  3. METHYLPREDNISOLONE [Suspect]
     Active Substance: METHYLPREDNISOLONE
     Indication: Chronic graft versus host disease
     Route: 065
  4. MEROPENEM [Concomitant]
     Active Substance: MEROPENEM
     Indication: Candida infection
     Dosage: UNK
     Route: 065
  5. MEROPENEM [Concomitant]
     Active Substance: MEROPENEM
     Indication: Haemophilus infection
  6. AMIKACIN [Concomitant]
     Active Substance: AMIKACIN
     Indication: Haemophilus infection
     Dosage: UNK
     Route: 065
  7. AMIKACIN [Concomitant]
     Active Substance: AMIKACIN
     Indication: Candida infection

REACTIONS (8)
  - Interstitial lung disease [Fatal]
  - Pulmonary fibrosis [Fatal]
  - Bronchopulmonary aspergillosis [Fatal]
  - Myopathy [Fatal]
  - Hypoxia [Unknown]
  - Respiratory tract infection [Fatal]
  - Psychotic disorder [Fatal]
  - Blood pressure decreased [Unknown]

NARRATIVE: CASE EVENT DATE: 20170101
